FAERS Safety Report 4410025-8 (Version None)
Quarter: 2004Q3

REPORT INFORMATION
  Report Type: 
  Country: None (occurrence: None)
  Receive Date: 20040726
  Receipt Date: 20040709
  Transmission Date: 20050211
  Serious: Yes (Hospitalization)
  Sender: FDA-Public Use
  Company Number: 04H-163-0266755-00

PATIENT
  Age: 35 Year
  Sex: Female

DRUGS (3)
  1. FENTANYL CITRATE [Suspect]
     Indication: ANAESTHESIA
     Dates: start: 20040518, end: 20040518
  2. ISOFLURANE [Suspect]
     Indication: ANAESTHESIA
     Dates: start: 20040518, end: 20040518
  3. ESCITALOPRAM OXALATE [Suspect]
     Indication: POST-TRAUMATIC STRESS DISORDER
     Dosage: PER ORAL
     Route: 048
     Dates: start: 20040301, end: 20040317

REACTIONS (16)
  - ABNORMAL DREAMS [None]
  - AGGRESSION [None]
  - ALCOHOL USE [None]
  - ANAESTHETIC COMPLICATION [None]
  - CHEST WALL PAIN [None]
  - COMA [None]
  - CONVERSION DISORDER [None]
  - CONVULSION [None]
  - FALL [None]
  - GAZE PALSY [None]
  - HEAD INJURY [None]
  - HEADACHE [None]
  - HEMIPLEGIA TRANSIENT [None]
  - PARAESTHESIA [None]
  - SOMNOLENCE [None]
  - VISION BLURRED [None]
